FAERS Safety Report 25810858 (Version 1)
Quarter: 2025Q3

REPORT INFORMATION
  Report Type: Report from Study
  Country: US (occurrence: US)
  Receive Date: 20250917
  Receipt Date: 20250917
  Transmission Date: 20251021
  Serious: No
  Sender: SUNOVION
  Company Number: US-SUMITOMO PHARMA SWITZERLAND GMBH-2025SPA008096

PATIENT
  Age: 75 Year
  Sex: Male

DRUGS (14)
  1. ORGOVYX [Suspect]
     Active Substance: RELUGOLIX
     Indication: Prostate cancer
     Route: 048
  2. ASPIRIN [Concomitant]
     Active Substance: ASPIRIN
  3. CALCIUM CARBONATE [Concomitant]
     Active Substance: CALCIUM CARBONATE
  4. CHONDROITIN SULFATE (BOVINE)\GLUCOSAMINE HYDROCHLORIDE [Concomitant]
     Active Substance: CHONDROITIN SULFATE (BOVINE)\GLUCOSAMINE HYDROCHLORIDE
  5. LISINOPRIL [Concomitant]
     Active Substance: LISINOPRIL
  6. METOPROLOL TARTRATE [Concomitant]
     Active Substance: METOPROLOL TARTRATE
  7. NIACIN [Concomitant]
     Active Substance: NIACIN
     Indication: Hyperlipidaemia
  8. NITROGLYCERIN [Concomitant]
     Active Substance: NITROGLYCERIN
  9. FISH OIL [Concomitant]
     Active Substance: FISH OIL
  10. REPATHA [Concomitant]
     Active Substance: EVOLOCUMAB
  11. SILDENAFIL [Concomitant]
     Active Substance: SILDENAFIL
  12. XARELTO [Concomitant]
     Active Substance: RIVAROXABAN
  13. FLOMAX [Concomitant]
     Active Substance: TAMSULOSIN HYDROCHLORIDE
  14. VITAMINS [Concomitant]
     Active Substance: VITAMINS

REACTIONS (2)
  - Hot flush [Unknown]
  - Incorrect dose administered [Unknown]
